FAERS Safety Report 12460628 (Version 1)
Quarter: 2016Q2

REPORT INFORMATION
  Report Type: Spontaneous
  Country: FR (occurrence: FR)
  Receive Date: 20160613
  Receipt Date: 20160613
  Transmission Date: 20160815
  Serious: Yes (Death, Other)
  Sender: FDA-Public Use
  Company Number: FR-PFIZER INC-2016294373

PATIENT
  Age: 62 Year
  Sex: Male

DRUGS (7)
  1. VFEND [Suspect]
     Active Substance: VORICONAZOLE
     Indication: ASPERGILLUS INFECTION
     Dosage: 400 MG, 2X/DAY
     Route: 042
     Dates: start: 20160212, end: 20160212
  2. ZYLORIC [Concomitant]
     Active Substance: ALLOPURINOL
     Dosage: 200 MG, 1X/DAY
     Route: 048
  3. FOZITEC /00915302/ [Concomitant]
     Dosage: UNK
     Route: 048
  4. ISOPTINE [Concomitant]
     Active Substance: VERAPAMIL HYDROCHLORIDE
     Dosage: UNK
     Route: 048
  5. KARDEGIC [Interacting]
     Active Substance: ASPIRIN LYSINE
     Dosage: 1 DF, 1X/DAY
     Route: 048
  6. VFEND [Interacting]
     Active Substance: VORICONAZOLE
     Dosage: 200 MG, 2X/DAY
     Route: 042
     Dates: start: 20160213, end: 20160216
  7. PROZAC [Concomitant]
     Active Substance: FLUOXETINE HYDROCHLORIDE
     Dosage: 20 MG, 1X/DAY
     Route: 048

REACTIONS (5)
  - Agitation [Recovering/Resolving]
  - Drug level increased [Unknown]
  - Encephalopathy [Fatal]
  - Drug interaction [Fatal]
  - Hallucination [Recovered/Resolved]

NARRATIVE: CASE EVENT DATE: 20160215
